FAERS Safety Report 9110773 (Version 1)
Quarter: 2013Q1

REPORT INFORMATION
  Report Type: Spontaneous
  Country: US (occurrence: US)
  Receive Date: 20130219
  Receipt Date: 20130219
  Transmission Date: 20140127
  Serious: No
  Sender: FDA-Public Use
  Company Number: US-BRISTOL-MYERS SQUIBB COMPANY-16595563

PATIENT
  Age: 7 Decade
  Sex: Male

DRUGS (2)
  1. ORENCIA [Suspect]
     Dosage: 1DF: DOSE IS 3 VIALS
     Route: 042
  2. METHOTREXATE [Concomitant]

REACTIONS (4)
  - Dizziness [Unknown]
  - Pollakiuria [Unknown]
  - Condition aggravated [Unknown]
  - Insomnia [Unknown]
